FAERS Safety Report 11536944 (Version 2)
Quarter: 2015Q4

REPORT INFORMATION
  Report Type: Report from Study
  Country: US (occurrence: US)
  Receive Date: 20150922
  Receipt Date: 20151022
  Transmission Date: 20160304
  Serious: Yes (Other)
  Sender: FDA-Public Use
  Company Number: US-BAYER-2015-391865

PATIENT
  Age: 62 Year
  Sex: Male

DRUGS (1)
  1. NEXAVAR [Suspect]
     Active Substance: SORAFENIB
     Indication: HEPATOCELLULAR CARCINOMA
     Dosage: 400 MG, BID
     Route: 048
     Dates: start: 20150723, end: 20151005

REACTIONS (11)
  - Dehydration [None]
  - Blood pressure increased [None]
  - Hypotension [None]
  - Memory impairment [None]
  - Confusional state [None]
  - Muscular weakness [None]
  - Hallucination [None]
  - Abnormal dreams [None]
  - Somnolence [None]
  - Weight decreased [None]
  - Fatigue [None]

NARRATIVE: CASE EVENT DATE: 20150723
